FAERS Safety Report 8325358-2 (Version None)
Quarter: 2012Q2

REPORT INFORMATION
  Report Type: 
  Country: None (occurrence: None)
  Receive Date: 20120501
  Receipt Date: 20120423
  Transmission Date: 20120825
  Serious: No
  Sender: FDA-Public Use
  Company Number: FI-JNJFOC-20120411258

PATIENT
  Age: 84 Year
  Sex: Female

DRUGS (4)
  1. NEUROMAX [Concomitant]
     Route: 065
  2. DURAGESIC-100 [Suspect]
     Indication: PAIN MANAGEMENT
     Route: 062
  3. GABAPENTIN [Concomitant]
     Route: 065
  4. PARA-TABS [Concomitant]
     Route: 065

REACTIONS (2)
  - INAPPROPRIATE SCHEDULE OF DRUG ADMINISTRATION [None]
  - PRODUCT QUALITY ISSUE [None]
